FAERS Safety Report 7155839-9 (Version None)
Quarter: 2010Q4

REPORT INFORMATION
  Report Type: 
  Country: None (occurrence: None)
  Receive Date: 20101214
  Receipt Date: 20101205
  Transmission Date: 20110411
  Serious: Yes (Hospitalization)
  Sender: FDA-Public Use
  Company Number: US-ASTRAZENECA-2010SE49263

PATIENT
  Age: 69 Year
  Sex: Male
  Weight: 185 kg

DRUGS (5)
  1. CRESTOR [Suspect]
     Indication: HYPERCHOLESTEROLAEMIA
     Route: 048
  2. CRESTOR [Suspect]
     Route: 048
  3. CRESTOR [Suspect]
     Route: 048
     Dates: start: 20100101
  4. LISINOPRIL AND HYDROCHLOROTHIAZIDE [Concomitant]
     Dosage: 10 MG/12.5 MG QD
     Route: 048
  5. URSODIOL [Concomitant]
     Route: 048

REACTIONS (4)
  - IMMOBILE [None]
  - PERONEAL NERVE PALSY [None]
  - TENDON RUPTURE [None]
  - WOUND INFECTION [None]
